FAERS Safety Report 4725125-2 (Version None)
Quarter: 2005Q3

REPORT INFORMATION
  Report Type: 
  Country: None (occurrence: None)
  Receive Date: 20050726
  Receipt Date: 20050713
  Transmission Date: 20060218
  Serious: Yes (Hospitalization, Disabling)
  Sender: FDA-Public Use
  Company Number: CLOF-10042

PATIENT
  Age: 10 Year
  Sex: Female

DRUGS (1)
  1. CLOFARABINE [Suspect]
     Indication: ACUTE LYMPHOCYTIC LEUKAEMIA
     Dosage: 52 MG/M2 DAILY

REACTIONS (7)
  - DIFFICULTY IN WALKING [None]
  - ERYTHEMA [None]
  - FEBRILE NEUTROPENIA [None]
  - HAEMATEMESIS [None]
  - HYPOTENSION [None]
  - PAIN IN EXTREMITY [None]
  - PYREXIA [None]
